FAERS Safety Report 15192234 (Version 1)
Quarter: 2018Q3

REPORT INFORMATION
  Report Type: Spontaneous
  Country: US (occurrence: US)
  Receive Date: 20180724
  Receipt Date: 20180724
  Transmission Date: 20181010
  Serious: Yes (Life-Threatening)
  Sender: FDA-Public Use
  Company Number: US-ALSI-201800452

PATIENT
  Age: 65 Year
  Sex: Male

DRUGS (1)
  1. NITROGEN. [Suspect]
     Active Substance: NITROGEN
     Indication: CRYOTHERAPY
     Route: 048

REACTIONS (1)
  - Embolism [Recovered/Resolved]
